FAERS Safety Report 9369800 (Version 1)
Quarter: 2013Q2

REPORT INFORMATION
  Report Type: Spontaneous
  Country: FR (occurrence: FR)
  Receive Date: 20130626
  Receipt Date: 20130626
  Transmission Date: 20140414
  Serious: Yes (Other)
  Sender: FDA-Public Use
  Company Number: FR-PFIZER INC-2013185590

PATIENT
  Age: 77 Year
  Sex: Female

DRUGS (3)
  1. TAHOR [Suspect]
     Indication: HYPERCHOLESTEROLAEMIA
     Dosage: 1 DF, DAILY
     Route: 048
     Dates: start: 20041110
  2. KARDEGIC [Concomitant]
     Dosage: 1 DF, DAILY
     Route: 048
     Dates: start: 20071229
  3. COVERSYL [Concomitant]
     Indication: HYPERTENSION
     Dosage: 1 DF, DAILY
     Route: 048
     Dates: start: 20010101

REACTIONS (1)
  - Muscle rupture [Recovering/Resolving]
